FAERS Safety Report 14628003 (Version 1)
Quarter: 2018Q1

REPORT INFORMATION
  Report Type: Spontaneous
  Country: US (occurrence: US)
  Receive Date: 20180312
  Receipt Date: 20180312
  Transmission Date: 20180509
  Serious: Yes (Other)
  Sender: FDA-Public Use
  Company Number: US-009507513-1803USA003302

PATIENT
  Age: 76 Year
  Sex: Female

DRUGS (2)
  1. MAXALT-MLT [Suspect]
     Active Substance: RIZATRIPTAN BENZOATE
     Dosage: 10 MG, TABLET
     Route: 048
  2. MAXALT [Suspect]
     Active Substance: RIZATRIPTAN BENZOATE
     Dosage: UNK

REACTIONS (2)
  - Amnesia [Unknown]
  - Arterial occlusive disease [Unknown]

NARRATIVE: CASE EVENT DATE: 2018
